FAERS Safety Report 18940499 (Version 2)
Quarter: 2021Q1

REPORT INFORMATION
  Report Type: Spontaneous
  Country: ZA (occurrence: ZA)
  Receive Date: 20210225
  Receipt Date: 20210312
  Transmission Date: 20210420
  Serious: Yes (Other)
  Sender: FDA-Public Use
  Company Number: ZA-PFIZER INC-2017464886

PATIENT
  Age: 25 Year
  Sex: Male
  Weight: 80 kg

DRUGS (6)
  1. SALAZOPYRINE [Suspect]
     Active Substance: SULFASALAZINE
     Dosage: 3 G, DAILY
     Dates: start: 2008, end: 2011
  2. PREDNISONE. [Suspect]
     Active Substance: PREDNISONE
     Dosage: 5 MG, DAILY
  3. CHLOROQUINE. [Suspect]
     Active Substance: CHLOROQUINE
     Dosage: 20 MG, DAILY
     Dates: start: 2008, end: 2018
  4. METHOTREXATE SODIUM. [Suspect]
     Active Substance: METHOTREXATE SODIUM
     Dosage: 25 MG, WEEKLY
     Route: 048
     Dates: start: 2005
  5. PREDNISONE. [Suspect]
     Active Substance: PREDNISONE
     Dosage: 20 MG, DAILY
     Dates: start: 2005
  6. ENBREL [Concomitant]
     Active Substance: ETANERCEPT
     Dosage: 50 MG, WEEKLY
     Route: 058
     Dates: start: 201404

REACTIONS (5)
  - Weight bearing difficulty [Recovered/Resolved]
  - Drug ineffective [Unknown]
  - Arthritis [Unknown]
  - Depression [Unknown]
  - Peptic ulcer [Unknown]

NARRATIVE: CASE EVENT DATE: 2011
